FAERS Safety Report 24751876 (Version 1)
Quarter: 2024Q4

REPORT INFORMATION
  Report Type: Spontaneous
  Country: US (occurrence: US)
  Receive Date: 20241219
  Receipt Date: 20241219
  Transmission Date: 20250114
  Serious: No
  Sender: PACIRA
  Company Number: US-ORG100016242-2024000555

PATIENT
  Age: 15 Year
  Sex: Male

DRUGS (1)
  1. EXPAREL [Suspect]
     Active Substance: BUPIVACAINE
     Indication: Surgery
     Dosage: NOT PROVIDED
     Route: 065
     Dates: start: 20240417, end: 20240417

REACTIONS (3)
  - Procedural vomiting [Unknown]
  - Procedural headache [Unknown]
  - Post procedural pruritus [Unknown]

NARRATIVE: CASE EVENT DATE: 20240401
